FAERS Safety Report 16599755 (Version 1)
Quarter: 2019Q3

REPORT INFORMATION
  Report Type: Spontaneous
  Country: US (occurrence: US)
  Receive Date: 20190719
  Receipt Date: 20190719
  Transmission Date: 20191004
  Serious: No
  Sender: FDA-Public Use
  Company Number: US-GALDERMA-US19038954

PATIENT
  Age: 21 Year
  Sex: Female

DRUGS (2)
  1. PROACTIV MD ADAPALENE ACNE TREATMENT [Suspect]
     Active Substance: ADAPALENE
     Indication: ACNE
     Dosage: 0.1%
     Route: 061
  2. PROACTIV MD ADAPALENE ACNE TREATMENT [Suspect]
     Active Substance: ADAPALENE
     Indication: BLISTER

REACTIONS (6)
  - Inappropriate schedule of product administration [Recovered/Resolved]
  - Exposure during pregnancy [Recovered/Resolved]
  - Overdose [Recovered/Resolved]
  - Acne [Unknown]
  - Product use in unapproved indication [Recovered/Resolved]
  - Drug ineffective [Unknown]
